FAERS Safety Report 16381166 (Version 4)
Quarter: 2019Q3

REPORT INFORMATION
  Report Type: Spontaneous
  Country: CO (occurrence: CO)
  Receive Date: 20190602
  Receipt Date: 20190916
  Transmission Date: 20191004
  Serious: Yes (Hospitalization, Other)
  Sender: FDA-Public Use
  Company Number: CO-AMGEN-COLSP2017068987

PATIENT
  Age: 51 Year
  Sex: Male

DRUGS (2)
  1. ENBREL [Suspect]
     Active Substance: ETANERCEPT
     Indication: ANKYLOSING SPONDYLITIS
     Dosage: 50 MILLIGRAM, QWK
     Route: 058
     Dates: start: 2011
  2. ENBREL [Suspect]
     Active Substance: ETANERCEPT
     Dosage: 50 MILLIGRAM, QWK
     Route: 058
     Dates: start: 20190430

REACTIONS (12)
  - Wrong technique in product usage process [Unknown]
  - Bone marrow disorder [Unknown]
  - Bedridden [Recovering/Resolving]
  - Decreased immune responsiveness [Unknown]
  - Femur fracture [Not Recovered/Not Resolved]
  - Malaise [Unknown]
  - Accident at home [Unknown]
  - Spinal fracture [Not Recovered/Not Resolved]
  - Muscular weakness [Not Recovered/Not Resolved]
  - Pain [Unknown]
  - Fibula fracture [Unknown]
  - Dysstasia [Unknown]

NARRATIVE: CASE EVENT DATE: 2011
